FAERS Safety Report 12208966 (Version 1)
Quarter: 2016Q1

REPORT INFORMATION
  Report Type: Spontaneous
  Country: US (occurrence: US)
  Receive Date: 20160324
  Receipt Date: 20160324
  Transmission Date: 20160526
  Serious: No
  Sender: FDA-Public Use
  Company Number: US-SHIONOGI, INC-2016000286

PATIENT
  Age: 53 Year
  Sex: Female

DRUGS (2)
  1. OSPHENA [Suspect]
     Active Substance: OSPEMIFENE
     Indication: VULVOVAGINAL DRYNESS
     Dosage: UNK
     Route: 065
     Dates: start: 2016
  2. OSPHENA [Suspect]
     Active Substance: OSPEMIFENE
     Indication: OFF LABEL USE

REACTIONS (3)
  - Off label use [Unknown]
  - Dysmenorrhoea [Unknown]
  - Abdominal distension [Unknown]

NARRATIVE: CASE EVENT DATE: 2016
